FAERS Safety Report 13965476 (Version 2)
Quarter: 2017Q4

REPORT INFORMATION
  Report Type: Report from Study
  Country: CN (occurrence: CN)
  Receive Date: 20170913
  Receipt Date: 20171005
  Transmission Date: 20180320
  Serious: Yes (Hospitalization)
  Sender: FDA-Public Use
  Company Number: CN-JNJFOC-20170910069

PATIENT
  Sex: Female
  Weight: 47 kg

DRUGS (7)
  1. MEGLUMINE [Concomitant]
     Active Substance: MEGLUMINE
     Indication: DEGENERATIVE MITRAL VALVE DISEASE
     Route: 042
     Dates: start: 20170904
  2. ADENOSINE CYCLOPHOSPHATE [Concomitant]
     Active Substance: ADENOSINE
     Indication: MITRAL VALVE PROLAPSE
     Route: 042
     Dates: start: 20170904
  3. XARELTO [Suspect]
     Active Substance: RIVAROXABAN
     Indication: PRODUCT USED FOR UNKNOWN INDICATION
     Route: 048
  4. TORASEMIDE [Concomitant]
     Active Substance: TORSEMIDE
     Indication: ATRIAL FIBRILLATION
     Route: 048
     Dates: start: 20170814
  5. SPIRONOLACTONE. [Concomitant]
     Active Substance: SPIRONOLACTONE
     Indication: ATRIAL FIBRILLATION
     Route: 048
     Dates: start: 20170814
  6. TRIMETAZIDINE DIHYDROCHLORIDE [Concomitant]
     Active Substance: TRIMETAZIDINE DIHYDROCHLORIDE
     Indication: ATRIAL FIBRILLATION
     Route: 048
     Dates: start: 20170814
  7. DIGOXIN. [Concomitant]
     Active Substance: DIGOXIN
     Indication: ATRIAL FIBRILLATION
     Route: 048
     Dates: start: 20170814

REACTIONS (1)
  - Atrial fibrillation [Recovered/Resolved]

NARRATIVE: CASE EVENT DATE: 20170904
